FAERS Safety Report 4353223-4 (Version None)
Quarter: 2004Q2

REPORT INFORMATION
  Report Type: 
  Country: None (occurrence: None)
  Receive Date: 20040504
  Receipt Date: 20040426
  Transmission Date: 20050107
  Serious: Yes (Other)
  Sender: FDA-Public Use
  Company Number: A-CH2003-03301

PATIENT
  Age: 31 Year
  Sex: Female
  Weight: 63 kg

DRUGS (5)
  1. TRACLEER [Suspect]
     Indication: PULMONARY HYPERTENSION
     Dosage: SEE IMAGE
     Route: 048
     Dates: start: 20011016, end: 20011112
  2. TRACLEER [Suspect]
     Indication: PULMONARY HYPERTENSION
     Dosage: SEE IMAGE
     Route: 048
     Dates: start: 20011113
  3. DILTIAZEM HYDROCHLORIDE [Concomitant]
  4. SINTROM [Concomitant]
  5. LASIX [Concomitant]

REACTIONS (6)
  - ABORTION INDUCED [None]
  - COMPLICATIONS OF MATERNAL EXPOSURE TO THERAPEUTIC DRUGS [None]
  - HAEMATOMA [None]
  - PREGNANCY [None]
  - RETAINED PRODUCTS OF CONCEPTION [None]
  - UTERINE DISORDER [None]
